FAERS Safety Report 4522325-1 (Version None)
Quarter: 2004Q4

REPORT INFORMATION
  Report Type: 
  Country: None (occurrence: None)
  Receive Date: 20041207
  Receipt Date: 20041122
  Transmission Date: 20050328
  Serious: Yes (Death, Hospitalization)
  Sender: FDA-Public Use
  Company Number: 2004-0007209

PATIENT
  Age: 40 Year
  Sex: Male

DRUGS (10)
  1. VIREAD [Suspect]
     Indication: HIV INFECTION
  2. ABACAVIR SULFATE (ABACAVIR SULFATE) [Suspect]
     Indication: HIV INFECTION
  3. LAMIVUDINE [Suspect]
     Indication: HIV INFECTION
  4. MYCOPHENOLIC ACID [Suspect]
  5. EFAVIRENZ (EFAVIRENZ) [Suspect]
     Indication: HIV INFECTION
  6. DIDANOSINE [Suspect]
     Indication: HIV INFECTION
  7. STAVUDINE (STAVUDINE) [Concomitant]
  8. TACROLIMUS (TACROLIMUS) [Concomitant]
  9. ZIDOVUDINE [Concomitant]
  10. PEGINTERFERON ALFA-2A (PEGINTERFERON ALFA-2A) [Concomitant]

REACTIONS (17)
  - BLOOD DISORDER [None]
  - CEREBRAL HAEMORRHAGE [None]
  - CHOLESTASIS [None]
  - COMPLICATIONS OF TRANSPLANTED LIVER [None]
  - DRUG INTERACTION [None]
  - GRAND MAL CONVULSION [None]
  - HEADACHE [None]
  - HEPATIC NECROSIS [None]
  - HEPATIC STEATOSIS [None]
  - HEPATITIS C [None]
  - HYPERTENSION [None]
  - LABORATORY TEST ABNORMAL [None]
  - LACTIC ACIDOSIS [None]
  - MITOCHONDRIAL CYTOPATHY [None]
  - MITOCHONDRIAL TOXICITY [None]
  - NAUSEA [None]
  - VOMITING [None]
